FAERS Safety Report 20800248 (Version 1)
Quarter: 2022Q2

REPORT INFORMATION
  Report Type: Spontaneous
  Country: US (occurrence: US)
  Receive Date: 20220509
  Receipt Date: 20220509
  Transmission Date: 20220721
  Serious: No
  Sender: FDA-Public Use
  Company Number: US-UCBSA-2022002718

PATIENT
  Sex: Female

DRUGS (2)
  1. CIMZIA [Suspect]
     Active Substance: CERTOLIZUMAB PEGOL
     Indication: Rheumatoid arthritis
     Dosage: 400 MILLIGRAM, MONTHLY (QM)
     Route: 058
     Dates: start: 202112
  2. COVID-19 VACCINE [Concomitant]
     Indication: COVID-19
     Dosage: UNK

REACTIONS (3)
  - Product dose omission issue [Unknown]
  - Off label use [Unknown]
  - COVID-19 immunisation [Unknown]
